FAERS Safety Report 16590891 (Version 1)
Quarter: 2019Q3

REPORT INFORMATION
  Report Type: Spontaneous
  Country: US (occurrence: US)
  Receive Date: 20190717
  Receipt Date: 20190717
  Transmission Date: 20191004
  Serious: Yes (Death, Hospitalization, Disabling)
  Sender: FDA-Public Use
  Company Number: None

PATIENT
  Age: 40 Year
  Sex: Male
  Weight: 85.5 kg

DRUGS (2)
  1. CHANTIX [Suspect]
     Active Substance: VARENICLINE TARTRATE
  2. PRESCRIBED MEDICATIONS [Concomitant]

REACTIONS (5)
  - Insomnia [None]
  - Substance abuser [None]
  - Mental disorder [None]
  - Nightmare [None]
  - Dependence [None]
